FAERS Safety Report 8182512-0 (Version None)
Quarter: 2012Q1

REPORT INFORMATION
  Report Type: 
  Country: None (occurrence: None)
  Receive Date: 20120305
  Receipt Date: 20120227
  Transmission Date: 20120608
  Serious: No
  Sender: FDA-Public Use
  Company Number: US-BIOGENIDEC-2010BI018081

PATIENT
  Sex: Female

DRUGS (5)
  1. CYMBALTA [Concomitant]
     Indication: DEPRESSION
  2. TYSABRI [Suspect]
     Indication: MULTIPLE SCLEROSIS
     Route: 042
     Dates: start: 20080827
  3. LORAZEPAM [Concomitant]
     Indication: ANXIETY
  4. LUNESTA [Concomitant]
     Indication: INSOMNIA
     Dates: start: 20110101
  5. SEROQUEL [Concomitant]
     Indication: DEPRESSION

REACTIONS (8)
  - PAIN IN EXTREMITY [None]
  - BURNING SENSATION [None]
  - ASTHENIA [None]
  - PARAESTHESIA [None]
  - FATIGUE [None]
  - HEADACHE [None]
  - ERYTHEMA [None]
  - MEMORY IMPAIRMENT [None]
